FAERS Safety Report 8999962 (Version 1)
Quarter: 2013Q1

REPORT INFORMATION
  Report Type: Spontaneous
  Country: CN (occurrence: CN)
  Receive Date: 20130102
  Receipt Date: 20130102
  Transmission Date: 20140127
  Serious: Yes (Hospitalization, Other)
  Sender: FDA-Public Use
  Company Number: CN-ASTELLAS-2012JP012231

PATIENT
  Sex: Male

DRUGS (9)
  1. PROGRAF [Suspect]
     Indication: RENAL TRANSPLANT
     Dosage: UNK
     Route: 048
     Dates: start: 20011227
  2. PROGRAF [Suspect]
     Dosage: UNK
     Route: 048
     Dates: start: 2008
  3. CELLCEPT                           /01275102/ [Suspect]
     Indication: RENAL TRANSPLANT
     Dosage: 750 MG, BID
     Route: 048
     Dates: start: 20011227
  4. CELLCEPT                           /01275102/ [Suspect]
     Dosage: 500 MG, BID
     Route: 048
  5. CICLOSPORINE [Concomitant]
     Indication: RENAL TRANSPLANT
     Dosage: UNK
     Route: 048
     Dates: end: 2003
  6. SANDIMMUN NEORAL [Concomitant]
     Indication: RENAL TRANSPLANT
     Dosage: UNK
     Route: 048
     Dates: start: 2003, end: 2008
  7. PREDNISONE [Concomitant]
     Indication: RENAL TRANSPLANT
     Dosage: UNK
     Route: 048
     Dates: start: 20011227, end: 2003
  8. PREDNISONE [Concomitant]
     Dosage: UNK
     Dates: end: 2008
  9. INSULIN [Concomitant]
     Indication: BLOOD GLUCOSE INCREASED
     Route: 065

REACTIONS (4)
  - Diabetes mellitus [Recovering/Resolving]
  - Blood creatinine increased [Recovered/Resolved]
  - Benign prostatic hyperplasia [Recovering/Resolving]
  - Hypertension [Recovering/Resolving]
